FAERS Safety Report 8964160 (Version 1)
Quarter: 2012Q4

REPORT INFORMATION
  Report Type: 
  Country: IT (occurrence: IT)
  Receive Date: 20121213
  Receipt Date: 20121213
  Transmission Date: 20130627
  Serious: Yes (Other)
  Sender: FDA-Public Use
  Company Number: IT-BAXTER-2012BAX026474

PATIENT
  Age: 32 Year
  Sex: Female

DRUGS (5)
  1. ENDOXAN BAXTER [Suspect]
     Indication: BREAST CANCER
     Route: 042
     Dates: start: 20121121, end: 20121121
  2. TAXOTERE [Suspect]
     Indication: BREAST CANCER
     Route: 065
     Dates: start: 20121121, end: 20121121
  3. FARMORUBICINA [Suspect]
     Indication: BREAST CANCER
     Route: 042
     Dates: start: 20121121, end: 20121121
  4. ONDANSETRON [Concomitant]
     Indication: BREAST CANCER
     Route: 042
     Dates: start: 20121121, end: 20121121
  5. SOLDESAM [Concomitant]
     Indication: BREAST CANCER
     Route: 042
     Dates: start: 20121121, end: 20121121

REACTIONS (3)
  - Dyspnoea [Unknown]
  - Tachycardia [Unknown]
  - Flushing [Unknown]
